FAERS Safety Report 9872954 (Version 2)
Quarter: 2014Q1

REPORT INFORMATION
  Report Type: Spontaneous
  Country: US (occurrence: US)
  Receive Date: 20140206
  Receipt Date: 20140206
  Transmission Date: 20141002
  Serious: No
  Sender: FDA-Public Use
  Company Number: US-ACORDA-ACO_21406_2010

PATIENT
  Age: 55 Year
  Sex: Female
  Weight: 68.27 kg

DRUGS (7)
  1. AMPYRA [Suspect]
     Indication: GAIT DISTURBANCE
     Dosage: 10 MG, BID
     Route: 048
     Dates: start: 20100608, end: 20100610
  2. TYSABRI [Concomitant]
     Dosage: UNK
     Dates: start: 200908
  3. RITALIN [Concomitant]
     Dosage: UNK
     Dates: start: 2010
  4. CYMBALTA [Concomitant]
     Dosage: UNK
     Dates: start: 2008
  5. BENICAR [Concomitant]
     Dosage: UNK
     Dates: start: 2008
  6. DILTIAZEM [Concomitant]
     Dosage: UNK
     Dates: start: 2008
  7. VITAMIN D NOS [Concomitant]
     Dosage: UNK
     Dates: start: 200808

REACTIONS (1)
  - Dizziness [Recovered/Resolved]
